FAERS Safety Report 11628647 (Version 2)
Quarter: 2015Q4

REPORT INFORMATION
  Report Type: Report from Study
  Country: DE (occurrence: DE)
  Receive Date: 20151014
  Receipt Date: 20151204
  Transmission Date: 20160304
  Serious: Yes (Other)
  Sender: FDA-Public Use
  Company Number: DE-BIOGENIDEC-2015BI137642

PATIENT
  Age: 31 Year
  Sex: Female
  Weight: 60 kg

DRUGS (3)
  1. ZOPICLON [Concomitant]
     Active Substance: ZOPICLONE
     Route: 048
     Dates: start: 20140808
  2. TECFIDERA [Suspect]
     Active Substance: DIMETHYL FUMARATE
     Indication: MULTIPLE SCLEROSIS
     Route: 048
     Dates: start: 20141030, end: 20141105
  3. TECFIDERA [Suspect]
     Active Substance: DIMETHYL FUMARATE
     Indication: MULTIPLE SCLEROSIS
     Route: 048
     Dates: start: 20141105

REACTIONS (1)
  - Lymphocyte count increased [Recovered/Resolved]

NARRATIVE: CASE EVENT DATE: 20150911
